FAERS Safety Report 8791097 (Version 7)
Quarter: 2014Q3

REPORT INFORMATION
  Report Type: Spontaneous
  Country: US (occurrence: None)
  Receive Date: 20120907
  Receipt Date: 20140728
  Transmission Date: 20150326
  Serious: Yes (Life-Threatening, Hospitalization, Other)
  Sender: FDA-Public Use
  Company Number: ADR-2012-01640

PATIENT
  Sex: Male

DRUGS (6)
  1. FENTANYL. [Concomitant]
     Active Substance: FENTANYL
  2. DILAUDID [Concomitant]
     Active Substance: HYDROMORPHONE HYDROCHLORIDE
  3. BACLOFEN. [Suspect]
     Active Substance: BACLOFEN
     Indication: PAIN
  4. BACLOFEN. [Suspect]
     Active Substance: BACLOFEN
  5. CLONIDINE. [Concomitant]
     Active Substance: CLONIDINE
  6. BUPIVACAINE [Suspect]
     Active Substance: BUPIVACAINE

REACTIONS (28)
  - Parosmia [None]
  - Activities of daily living impaired [None]
  - Skin ulcer [None]
  - Psychological trauma [None]
  - Respiratory failure [None]
  - Dyspnoea [None]
  - Overdose [None]
  - Scar [None]
  - Apparent death [None]
  - Hypoaesthesia [None]
  - Urinary retention [None]
  - Implant site extravasation [None]
  - Pain [None]
  - Wound abscess [None]
  - Weight decreased [None]
  - Device damage [None]
  - Device infusion issue [None]
  - Hyperhidrosis [None]
  - Vomiting [None]
  - Device malfunction [None]
  - Device leakage [None]
  - Dysgeusia [None]
  - Cerebrospinal fluid leakage [None]
  - No therapeutic response [None]
  - Product odour abnormal [None]
  - Incorrect dose administered by device [None]
  - Abasia [None]
  - Burning sensation [None]
